FAERS Safety Report 15426011 (Version 1)
Quarter: 2018Q3

REPORT INFORMATION
  Report Type: Spontaneous
  Country: GB (occurrence: GB)
  Receive Date: 20180925
  Receipt Date: 20180925
  Transmission Date: 20181010
  Serious: Yes (Hospitalization)
  Sender: FDA-Public Use
  Company Number: GB-TEVA-2018-GB-958370

PATIENT
  Age: 84 Year
  Sex: Male

DRUGS (9)
  1. BUDESONIDE. [Suspect]
     Active Substance: BUDESONIDE
     Dosage: 9 MILLIGRAM DAILY; MORNING
  2. SODIUM HYDROGEN CARBONATE [Concomitant]
     Active Substance: SODIUM BICARBONATE
  3. CLOPIDOGREL [Suspect]
     Active Substance: CLOPIDOGREL BISULFATE
     Dosage: 75 MILLIGRAM DAILY; MORNING
     Route: 048
     Dates: end: 20180824
  4. ATORVASTATIN [Concomitant]
     Active Substance: ATORVASTATIN
  5. FERROUS SULFATE. [Concomitant]
     Active Substance: FERROUS SULFATE
  6. LANSOPRAZOLE. [Concomitant]
     Active Substance: LANSOPRAZOLE
  7. COLECALCIFEROL [Concomitant]
     Active Substance: CHOLECALCIFEROL
  8. BISOPROLOL [Concomitant]
     Active Substance: BISOPROLOL
  9. ADCAL?D3 [Concomitant]
     Active Substance: CALCIUM CARBONATE\CHOLECALCIFEROL
     Dosage: 750MG/200UNIT

REACTIONS (2)
  - Gastrointestinal haemorrhage [Recovering/Resolving]
  - Faeces discoloured [Unknown]

NARRATIVE: CASE EVENT DATE: 20180824
